FAERS Safety Report 4989497-6 (Version None)
Quarter: 2006Q2

REPORT INFORMATION
  Report Type: 
  Country: None (occurrence: None)
  Receive Date: 20060502
  Receipt Date: 20051005
  Transmission Date: 20061013
  Serious: Yes (Death, Hospitalization, Disabling, Other)
  Sender: FDA-Public Use
  Company Number: US-MERCK-0510USA03433

PATIENT
  Age: 59 Year
  Sex: Male

DRUGS (2)
  1. VIOXX [Suspect]
     Indication: ARTHRITIS
     Route: 048
     Dates: start: 20000101, end: 20030906
  2. ASPIRIN [Concomitant]
     Route: 065

REACTIONS (15)
  - ADVERSE DRUG REACTION [None]
  - ARTHROPATHY [None]
  - CARDIOMEGALY [None]
  - CEREBROVASCULAR ACCIDENT [None]
  - CONVULSION [None]
  - DEATH [None]
  - DYSPNOEA [None]
  - FLUID IMBALANCE [None]
  - GASTRIC DISORDER [None]
  - HEADACHE [None]
  - HYPOTENSION [None]
  - PSEUDOMONAS INFECTION [None]
  - RESPIRATORY FAILURE [None]
  - STAPHYLOCOCCAL INFECTION [None]
  - ULCER [None]
